FAERS Safety Report 21329706 (Version 2)
Quarter: 2022Q4

REPORT INFORMATION
  Report Type: Spontaneous
  Country: US (occurrence: US)
  Receive Date: 20220913
  Receipt Date: 20221012
  Transmission Date: 20230113
  Serious: No
  Sender: FDA-Public Use
  Company Number: US-GSK-US2022AMR130505

PATIENT
  Sex: Female

DRUGS (2)
  1. TRELEGY ELLIPTA [Suspect]
     Active Substance: FLUTICASONE FUROATE\UMECLIDINIUM BROMIDE\VILANTEROL TRIFENATATE
     Indication: Emphysema
     Dosage: UNK
     Dates: start: 2021
  2. INCRUSE ELLIPTA [Suspect]
     Active Substance: UMECLIDINIUM BROMIDE
     Indication: Product used for unknown indication
     Dosage: UNK
     Dates: start: 2022

REACTIONS (5)
  - Glossodynia [Unknown]
  - Muscle spasms [Unknown]
  - Labelled drug-drug interaction medication error [Unknown]
  - Product dose omission issue [Unknown]
  - Drug ineffective [Unknown]
